FAERS Safety Report 21939802 (Version 1)
Quarter: 2023Q1

REPORT INFORMATION
  Report Type: Report from Study
  Country: US (occurrence: US)
  Receive Date: 20230201
  Receipt Date: 20230201
  Transmission Date: 20230418
  Serious: No
  Sender: FDA-Public Use
  Company Number: US-EXELIXIS-CABO-22048902

PATIENT
  Sex: Female

DRUGS (2)
  1. CABOMETYX [Suspect]
     Active Substance: CABOZANTINIB S-MALATE
     Indication: Hepatocellular carcinoma
     Dosage: 20 MG, QD
     Route: 048
     Dates: start: 20220118
  2. CABOMETYX [Suspect]
     Active Substance: CABOZANTINIB S-MALATE
     Indication: Cholangiocarcinoma

REACTIONS (5)
  - Skin exfoliation [Unknown]
  - Peripheral swelling [Unknown]
  - Joint swelling [Unknown]
  - Amnesia [Unknown]
  - Fatigue [Unknown]
